FAERS Safety Report 15468356 (Version 3)
Quarter: 2018Q4

REPORT INFORMATION
  Report Type: Spontaneous
  Country: ES (occurrence: ES)
  Receive Date: 20181005
  Receipt Date: 20181025
  Transmission Date: 20190204
  Serious: Yes (Hospitalization, Other)
  Sender: FDA-Public Use
  Company Number: ES-PFIZER INC-2018398536

PATIENT
  Age: 55 Year
  Sex: Male

DRUGS (18)
  1. PREDNISONE. [Suspect]
     Active Substance: PREDNISONE
     Dosage: 20 MG, DAILY
     Dates: start: 20170113
  2. ADVAGRAF [Suspect]
     Active Substance: TACROLIMUS
     Indication: LIVER TRANSPLANT
     Dosage: 15 MG/24H, (ON WEEK 2 (14 D))
     Route: 048
     Dates: start: 20170113
  3. PREDNISONE. [Suspect]
     Active Substance: PREDNISONE
     Dosage: 15 MG, 1X/DAY (ON WEEK 2 (14 D))
     Route: 065
     Dates: start: 20170116
  4. PREDNISONE. [Suspect]
     Active Substance: PREDNISONE
     Dosage: 2.5 MG/24H, (ON WEEK 10 (74 D),WEEK 12 (85 D), WEEK 14 (98 D))
     Route: 065
     Dates: start: 201701
  5. ADVAGRAF [Suspect]
     Active Substance: TACROLIMUS
     Indication: IMMUNOSUPPRESSION
     Dosage: 8 MG/24H, (ON WEEK 7 (51 D))
     Route: 048
     Dates: start: 2017
  6. ADVAGRAF [Suspect]
     Active Substance: TACROLIMUS
     Dosage: 12 MG/24H, (ON WEEK 4 (28 D))
     Route: 048
     Dates: start: 2017
  7. PREDNISONE. [Suspect]
     Active Substance: PREDNISONE
     Indication: LIVER TRANSPLANT
     Dosage: 5 MG/24H (ON WEEK 7 (51 D), WEEK 9 (64 D), WEEK 9 (66 D), WEEK 10 (70 D), WEEK 10 (72 D))
     Route: 065
     Dates: start: 20170222
  8. SIMULECT [Suspect]
     Active Substance: BASILIXIMAB
     Indication: LIVER TRANSPLANT
     Dosage: UNK UNK, SINGLE (1 DOSE OF BASILIXIMAB)
     Route: 065
     Dates: start: 201701
  9. PROGRAF [Suspect]
     Active Substance: TACROLIMUS\TACROLIMUS ANHYDROUS
     Indication: IMMUNOSUPPRESSION
     Dosage: 5 MG, 2X/DAY
     Route: 065
     Dates: start: 20170105, end: 20170108
  10. CELLCEPT [Suspect]
     Active Substance: MYCOPHENOLATE MOFETIL\MYCOPHENOLATE MOFETIL HYDROCHLORIDE
     Indication: LIVER TRANSPLANT
     Dosage: 1 G, 2X/DAY (1 G EVERY 12 HOURS) ON WEEK 2 (14 D),WEEK 4 (28 D),7 (51 D),9 (64 D),12 (85 D),14 (98 D
     Route: 065
     Dates: start: 201701
  11. METHYLPREDNISOLONE SODIUM SUCCINATE. [Suspect]
     Active Substance: METHYLPREDNISOLONE SODIUM SUCCINATE
     Indication: IMMUNOSUPPRESSION
  12. ADVAGRAF [Suspect]
     Active Substance: TACROLIMUS
     Dosage: 7 MG/24H, (ON WEEK 9 (64 D), WEEK 9 (66 D), WEEK 10 (70 D))
     Route: 048
     Dates: end: 20170314
  13. SIMULECT [Suspect]
     Active Substance: BASILIXIMAB
     Indication: IMMUNOSUPPRESSION
  14. ADVAGRAF [Suspect]
     Active Substance: TACROLIMUS
     Dosage: 13 MG, UNK
     Route: 048
     Dates: start: 20170108, end: 20170113
  15. CELLCEPT [Suspect]
     Active Substance: MYCOPHENOLATE MOFETIL\MYCOPHENOLATE MOFETIL HYDROCHLORIDE
     Indication: IMMUNOSUPPRESSION
     Dosage: 500 MG, 2X/DAY (ON WEEK 10 (72 D), WEEK 10 (74)
     Route: 065
  16. METHYLPREDNISOLONE SODIUM SUCCINATE. [Suspect]
     Active Substance: METHYLPREDNISOLONE SODIUM SUCCINATE
     Indication: LIVER TRANSPLANT
     Dosage: 20 MG, DAILY
     Route: 065
     Dates: start: 201701
  17. PREDNISONE. [Suspect]
     Active Substance: PREDNISONE
     Indication: IMMUNOSUPPRESSION
     Dosage: 10 MG/24H (WEEK 4 (28 D))
     Route: 065
     Dates: start: 20170130
  18. PROGRAF [Suspect]
     Active Substance: TACROLIMUS\TACROLIMUS ANHYDROUS
     Indication: LIVER TRANSPLANT
     Dosage: 4 MG, 2X/DAY
     Route: 065
     Dates: start: 20170104, end: 20170105

REACTIONS (4)
  - Neurotoxicity [Recovered/Resolved]
  - Cytomegalovirus viraemia [Recovered/Resolved]
  - Drug-induced liver injury [Recovered/Resolved]
  - Hepatitis cholestatic [Recovered/Resolved]

NARRATIVE: CASE EVENT DATE: 20170118
